FAERS Safety Report 20461935 (Version 1)
Quarter: 2022Q1

REPORT INFORMATION
  Report Type: Other
  Country: KR (occurrence: None)
  Receive Date: 20220211
  Receipt Date: 20220211
  Transmission Date: 20220423
  Serious: Yes (Other)
  Sender: FDA-Public Use
  Company Number: KR-ROCHE-3019193

PATIENT
  Age: 62 Year
  Sex: Male
  Weight: 55.3 kg

DRUGS (5)
  1. ATEZOLIZUMAB [Suspect]
     Active Substance: ATEZOLIZUMAB
     Indication: Hepatocellular carcinoma
     Dosage: SUBSEQUENT DOSE: 28/DEC/2021
     Route: 041
     Dates: start: 20211207
  2. BEVACIZUMAB [Suspect]
     Active Substance: BEVACIZUMAB
     Indication: Hepatocellular carcinoma
     Dosage: SUBSEQUENT DOSE: 28/DEC/2021
     Route: 042
     Dates: start: 20211207
  3. URSODIOL [Concomitant]
     Active Substance: URSODIOL
     Dates: start: 20211130
  4. PENNEL (SOUTH KOREA) [Concomitant]
     Dates: start: 20211130
  5. ESOL [Concomitant]
     Indication: Hypertension

REACTIONS (1)
  - Ascites [Recovering/Resolving]

NARRATIVE: CASE EVENT DATE: 20220113
